FAERS Safety Report 7417871-7 (Version None)
Quarter: 2011Q2

REPORT INFORMATION
  Report Type: 
  Country: None (occurrence: None)
  Receive Date: 20110415
  Receipt Date: 20110404
  Transmission Date: 20111010
  Serious: Yes (Life-Threatening, Other)
  Sender: FDA-Public Use
  Company Number: DE-JNJFOC-20110205883

PATIENT
  Sex: Male
  Weight: 70 kg

DRUGS (4)
  1. BEROTEC [Concomitant]
  2. PALEXIA RETARD [Suspect]
     Indication: PAIN
     Route: 065
  3. TILIDINE [Concomitant]
  4. PALEXIA RETARD [Suspect]
     Route: 065

REACTIONS (2)
  - DEPRESSION [None]
  - WITHDRAWAL SYNDROME [None]
